FAERS Safety Report 8337862-1 (Version None)
Quarter: 2012Q2

REPORT INFORMATION
  Report Type: 
  Country: None (occurrence: None)
  Receive Date: 20120504
  Receipt Date: 20120423
  Transmission Date: 20120825
  Serious: Yes (Hospitalization, Other)
  Sender: FDA-Public Use
  Company Number: US-ELI_LILLY_AND_COMPANY-US201203001451

PATIENT
  Sex: Male
  Weight: 102 kg

DRUGS (12)
  1. KLONOPIN [Concomitant]
     Dosage: UNK, QD
  2. BUPROFEN [Concomitant]
     Dosage: UNK, QD
  3. CARDIOVEL [Concomitant]
     Dosage: UNK UNK, QD
  4. JANUVIA [Concomitant]
     Dosage: UNK, QD
  5. FORTEO [Suspect]
     Indication: OSTEOPOROSIS
     Dosage: 20 UG, QD
     Route: 065
  6. CELEBREX [Concomitant]
     Dosage: UNK, QD
  7. PRILOSEC [Concomitant]
     Dosage: UNK, QD
     Route: 065
  8. CRESTOR [Concomitant]
     Dosage: UNK, QD
  9. ZOLOFT [Concomitant]
     Dosage: UNK, QD
  10. GLIPIRIDE [Concomitant]
     Dosage: UNK, QD
  11. FLOMAX [Concomitant]
     Dosage: UNK UNK, QD
     Route: 065
  12. ENALAPRIL MALEATE [Concomitant]
     Dosage: UNK, QD

REACTIONS (2)
  - INTERMITTENT CLAUDICATION [None]
  - PARANOIA [None]
